FAERS Safety Report 10744117 (Version 1)
Quarter: 2015Q1

REPORT INFORMATION
  Report Type: Report from Study
  Country: NO (occurrence: NO)
  Receive Date: 20150128
  Receipt Date: 20150128
  Transmission Date: 20150721
  Serious: Yes (Death)
  Sender: FDA-Public Use
  Company Number: NO-ROCHE-1188344

PATIENT
  Age: 79 Year
  Sex: Female

DRUGS (2)
  1. ALTEPLASE [Suspect]
     Active Substance: ALTEPLASE
     Indication: CEREBRAL ARTERY OCCLUSION
     Dosage: 0.9 MG/KG, MAXIMUM DOSE 90 MG
     Route: 042
  2. HEPARIN [Suspect]
     Active Substance: HEPARIN SODIUM
     Indication: CEREBRAL ARTERY OCCLUSION
     Dosage: 5000 UNIT
     Route: 013

REACTIONS (2)
  - Subarachnoid haemorrhage [Fatal]
  - No therapeutic response [Fatal]
